FAERS Safety Report 24179337 (Version 2)
Quarter: 2024Q3

REPORT INFORMATION
  Report Type: Spontaneous
  Country: US (occurrence: US)
  Receive Date: 20240806
  Receipt Date: 20240826
  Transmission Date: 20241017
  Serious: No
  Sender: BAYER
  Company Number: US-BAYER-2024A113041

PATIENT
  Age: 88 Year
  Sex: Female

DRUGS (2)
  1. MIRALAX [Suspect]
     Active Substance: POLYETHYLENE GLYCOL 3350
     Indication: Laxative supportive care
  2. SOFTNER [Concomitant]
     Dosage: EVERY NIGHT

REACTIONS (4)
  - Gastrointestinal disorder [Unknown]
  - Muscular weakness [Unknown]
  - Pain [Unknown]
  - Drug ineffective [None]
